FAERS Safety Report 6209158-5 (Version None)
Quarter: 2009Q2

REPORT INFORMATION
  Report Type: 
  Country: None (occurrence: None)
  Receive Date: 20090522
  Receipt Date: 20090316
  Transmission Date: 20091009
  Serious: No
  Sender: FDA-Public Use
  Company Number: 8044079

PATIENT
  Age: 72 Year
  Sex: Male
  Weight: 72.1 kg

DRUGS (6)
  1. CIMZIA [Suspect]
     Indication: CROHN'S DISEASE
     Dosage: 400 MG SC
     Route: 058
     Dates: start: 20090201
  2. COUMADIN [Concomitant]
  3. ASACOL [Concomitant]
  4. ALENDRONATE [Concomitant]
  5. FEOSOL [Concomitant]
  6. CALCIUM CITRATE WITH VITAMIN D [Concomitant]

REACTIONS (3)
  - MUSCULAR WEAKNESS [None]
  - PRURITUS [None]
  - URTICARIA [None]
